FAERS Safety Report 22340400 (Version 1)
Quarter: 2023Q2

REPORT INFORMATION
  Report Type: Other
  Country: DE (occurrence: DE)
  Receive Date: 20230518
  Receipt Date: 20230518
  Transmission Date: 20230721
  Serious: Yes (Congenital Anomaly, Other)
  Sender: FDA-Public Use
  Company Number: None

PATIENT

DRUGS (4)
  1. RAYOS [Suspect]
     Active Substance: PREDNISONE
     Indication: Rheumatoid arthritis
     Dosage: 5 MG EVERY 1 D, 5 (MG/D)
     Route: 064
  2. TOCILIZUMAB [Suspect]
     Active Substance: TOCILIZUMAB
     Indication: Rheumatoid arthritis
     Dosage: 162 MG EVERY 1 WK, 162 (MG/WK)
     Route: 064
  3. FIASP [Concomitant]
     Active Substance: INSULIN ASPART
     Indication: Product used for unknown indication
     Dosage: UNK
     Route: 065
     Dates: start: 20200209, end: 20201014
  4. TRESIBA [Concomitant]
     Active Substance: INSULIN DEGLUDEC
     Indication: Product used for unknown indication
     Dosage: UNK
     Route: 065
     Dates: start: 20200209, end: 20201014

REACTIONS (6)
  - Foetal exposure during pregnancy [Unknown]
  - Premature baby [Unknown]
  - Ventricular septal defect [Unknown]
  - Hyperbilirubinaemia neonatal [Recovered/Resolved]
  - Newborn persistent pulmonary hypertension [Recovered/Resolved]
  - Atrial septal defect [Unknown]

NARRATIVE: CASE EVENT DATE: 20201014
